FAERS Safety Report 6076533-1 (Version None)
Quarter: 2009Q1

REPORT INFORMATION
  Report Type: 
  Country: None (occurrence: None)
  Receive Date: 20090211
  Receipt Date: 20090127
  Transmission Date: 20090719
  Serious: Yes (Hospitalization)
  Sender: FDA-Public Use
  Company Number: 2009S1001685

PATIENT
  Sex: Female

DRUGS (1)
  1. TRIAMTERENE AND HYDROCHLOROTHIAZIDE [Suspect]
     Dosage: 37.5 MG; 25 MG

REACTIONS (3)
  - BACK PAIN [None]
  - FEELING ABNORMAL [None]
  - MYOCARDIAL INFARCTION [None]
